FAERS Safety Report 4961623-4 (Version None)
Quarter: 2006Q1

REPORT INFORMATION
  Report Type: 
  Country: None (occurrence: None)
  Receive Date: 20060329
  Receipt Date: 20060321
  Transmission Date: 20060701
  Serious: Yes (Other)
  Sender: FDA-Public Use
  Company Number: 2006-DE-01484GD

PATIENT
  Age: 64 Year
  Sex: Female

DRUGS (4)
  1. HYDROCHLOROTHIAZIDE [Suspect]
  2. PICOPREP            (PICO-SALAX) [Suspect]
     Indication: GASTROINTESTINAL DISORDER
     Dosage: 31 G 2X, PO
     Route: 048
  3. DICLOFENAC SODIUM [Concomitant]
  4. CILAZAPRIL (CILAZAPRIL) [Concomitant]

REACTIONS (4)
  - GRAND MAL CONVULSION [None]
  - HYPOCALCAEMIA [None]
  - HYPOKALAEMIA [None]
  - HYPONATRAEMIA [None]
